FAERS Safety Report 24410445 (Version 1)
Quarter: 2024Q4

REPORT INFORMATION
  Report Type: Report from Study
  Country: BR (occurrence: BR)
  Receive Date: 20241008
  Receipt Date: 20241008
  Transmission Date: 20250114
  Serious: Yes (Other)
  Sender: ABBVIE
  Company Number: BR-ABBVIE-5952618

PATIENT
  Sex: Male

DRUGS (1)
  1. SKYRIZI [Suspect]
     Active Substance: RISANKIZUMAB-RZAA
     Indication: Psoriasis
     Dosage: FORM STRENGTH: 75 MG?150MG (TWO 75 MG INJECTIONS) EVERY 12 WEEKS
     Route: 058

REACTIONS (2)
  - Erythrodermic psoriasis [Unknown]
  - Pustular psoriasis [Unknown]
